FAERS Safety Report 25917993 (Version 1)
Quarter: 2025Q4

REPORT INFORMATION
  Report Type: Spontaneous
  Country: US (occurrence: US)
  Receive Date: 20251014
  Receipt Date: 20251014
  Transmission Date: 20260117
  Serious: No
  Sender: Kenvue
  Company Number: US-KENVUE-20250916021

PATIENT
  Sex: Female

DRUGS (2)
  1. WOMENS ROGAINE [Suspect]
     Active Substance: MINOXIDIL
     Indication: Product used for unknown indication
     Dosage: SED ALREADY A BOTTLE OF THE ROGAINE ON HER SCALP
     Route: 061
  2. JOHNSONS BABY SHAMPOO [Concomitant]
     Indication: Product used for unknown indication
     Route: 061

REACTIONS (1)
  - Alopecia [Unknown]
